FAERS Safety Report 18112013 (Version 2)
Quarter: 2024Q1

REPORT INFORMATION
  Report Type: Report from Study
  Country: BG (occurrence: BG)
  Receive Date: 20200805
  Receipt Date: 20240207
  Transmission Date: 20240409
  Serious: Yes (Other)
  Sender: FDA-Public Use
  Company Number: BG-ROCHE-2647773

PATIENT
  Age: 53 Year
  Sex: Female
  Weight: 54 kg

DRUGS (27)
  1. DENOSUMAB [Suspect]
     Active Substance: DENOSUMAB
     Indication: HER2 positive breast cancer
     Dosage: 120 MILLIGRAM, Q4WK
     Route: 058
     Dates: start: 20181219
  2. DENOSUMAB [Suspect]
     Active Substance: DENOSUMAB
     Indication: Breast cancer
     Dosage: UNK
     Route: 058
  3. NOLVADEX [Suspect]
     Active Substance: TAMOXIFEN CITRATE
     Indication: HER2 positive breast cancer
     Dosage: 20 MILLIGRAM, QD
     Route: 048
     Dates: start: 201610, end: 201706
  4. GOSERELIN [Suspect]
     Active Substance: GOSERELIN
     Indication: HER2 positive breast cancer
     Dosage: 3.6 MILLIGRAM, Q4WK, LAST ADMINISTRATION: JUN/2017
     Route: 058
     Dates: start: 201610
  5. TYKERB [Suspect]
     Active Substance: LAPATINIB DITOSYLATE
     Indication: Breast cancer
     Dosage: 1250 MILLIGRAM, QD, LAST ADMINISTRATION: 25-NOV-2019
     Route: 048
     Dates: start: 20191125
  6. TYKERB [Suspect]
     Active Substance: LAPATINIB DITOSYLATE
     Indication: HER2 positive breast cancer
  7. HERCEPTIN [Suspect]
     Active Substance: TRASTUZUMAB
     Indication: Breast cancer
     Dosage: 8 MILLIGRAM/KILOGRAM, QD
     Route: 042
     Dates: start: 20170804, end: 20170804
  8. HERCEPTIN [Suspect]
     Active Substance: TRASTUZUMAB
     Indication: HER2 positive breast cancer
     Dosage: 600 MILLIGRAM, Q3WK
     Route: 042
     Dates: start: 20181219, end: 20191111
  9. HERCEPTIN [Suspect]
     Active Substance: TRASTUZUMAB
     Dosage: 6 MILLIGRAM/KILOGRAM, Q3WK,LAST ADMINISTRATION: 09/OCT/2020
     Route: 042
     Dates: start: 20200218
  10. HERCEPTIN [Suspect]
     Active Substance: TRASTUZUMAB
     Dosage: 6 MILLIGRAM/KILOGRAM, Q3WK
     Route: 042
     Dates: start: 20170824, end: 20180808
  11. NAVELBINE [Suspect]
     Active Substance: VINORELBINE TARTRATE
     Indication: Breast cancer
     Dosage: 25 MILLIGRAM/SQ. METER, Q3WK, LAST ADMINISTRATION: 09/OCT/2020
     Route: 042
     Dates: start: 20200218
  12. KADCYLA [Suspect]
     Active Substance: ADO-TRASTUZUMAB EMTANSINE
     Indication: Breast cancer
     Dosage: 200 MILLIGRAM, Q3WK, LAST ADMINISTRATION: NOV/2018
     Route: 042
     Dates: start: 20180830
  13. PERJETA [Suspect]
     Active Substance: PERTUZUMAB
     Indication: Breast cancer
     Dosage: 840 MILLIGRAM, QD
     Route: 042
     Dates: start: 20170804, end: 20170804
  14. PERJETA [Suspect]
     Active Substance: PERTUZUMAB
     Indication: HER2 positive breast cancer
     Dosage: 420 MILLIGRAM, Q3WK
     Route: 042
     Dates: start: 20170824, end: 20180808
  15. PERJETA [Suspect]
     Active Substance: PERTUZUMAB
     Dosage: 420 MILLIGRAM, Q3WK, LAST ADMINISTRATION: 24/JUN/2019
     Route: 042
     Dates: start: 20190404
  16. TAXOTERE [Suspect]
     Active Substance: DOCETAXEL
     Indication: Breast cancer
     Dosage: 75 MILLIGRAM/SQ. METER, Q3WK
     Route: 042
     Dates: start: 20170804, end: 201711
  17. TAXOTERE [Suspect]
     Active Substance: DOCETAXEL
     Indication: HER2 positive breast cancer
     Dosage: 120 MILLIGRAM, Q3WK, LAST ADMINISTRATION: 03/MAY/2019
     Route: 042
     Dates: start: 20181219
  18. CAPECITABINE [Suspect]
     Active Substance: CAPECITABINE
     Indication: Breast cancer
     Dosage: 2000 MILLIGRAM, Q3WK
     Route: 048
     Dates: start: 20190530, end: 20191125
  19. CAPECITABINE [Suspect]
     Active Substance: CAPECITABINE
     Indication: HER2 positive breast cancer
  20. VANCOMYCIN [Concomitant]
     Active Substance: VANCOMYCIN
     Indication: Gastrointestinal bacterial infection
     Route: 048
     Dates: start: 20200512, end: 20200528
  21. MANNITOL [Concomitant]
     Active Substance: MANNITOL
     Dosage: 250 MILLIGRAM, BID
     Route: 040
     Dates: start: 20200421, end: 20200508
  22. MORPHINE [Concomitant]
     Active Substance: MORPHINE
     Dosage: UNK
  23. METRONIDAZOLE [Concomitant]
     Active Substance: METRONIDAZOLE
     Indication: Gastrointestinal bacterial infection
     Route: 048
     Dates: start: 20200512, end: 20200518
  24. FAMOTIDINE [Concomitant]
     Active Substance: FAMOTIDINE
     Indication: Gastrointestinal bacterial infection
     Route: 040
     Dates: start: 20200512, end: 20200528
  25. FENTANYL CITRATE [Concomitant]
     Active Substance: FENTANYL CITRATE
  26. RINGERS SOLUTION [Concomitant]
     Active Substance: CALCIUM CHLORIDE\POTASSIUM CHLORIDE\SODIUM CHLORIDE
     Dosage: 500 MILLIGRAM, BID
     Route: 042
     Dates: start: 20200421, end: 20200508
  27. GENTAMICIN [Concomitant]
     Active Substance: GENTAMICIN
     Dosage: 80 MILLIGRAM, BID
     Route: 048
     Dates: start: 20200421, end: 20200508

REACTIONS (4)
  - Metastases to spine [Recovered/Resolved]
  - Spinal compression fracture [Recovered/Resolved]
  - Paraparesis [Recovered/Resolved]
  - Gastrointestinal bacterial infection [Recovered/Resolved]

NARRATIVE: CASE EVENT DATE: 20191201
